FAERS Safety Report 7927450-0 (Version None)
Quarter: 2011Q4

REPORT INFORMATION
  Report Type: 
  Country: None (occurrence: None)
  Receive Date: 20111118
  Receipt Date: 20111108
  Transmission Date: 20120403
  Serious: Yes (Hospitalization)
  Sender: FDA-Public Use
  Company Number: NL-JNJFOC-20111104120

PATIENT
  Sex: Male
  Weight: 52.9 kg

DRUGS (4)
  1. MESALAMINE [Concomitant]
     Route: 048
  2. HUMIRA [Suspect]
     Indication: PRODUCT USED FOR UNKNOWN INDICATION
  3. REMICADE [Suspect]
     Indication: CROHN'S DISEASE
     Route: 042
     Dates: start: 20100415, end: 20101223
  4. HUMIRA [Suspect]
     Dates: start: 20111005

REACTIONS (1)
  - COLONOSCOPY [None]
